FAERS Safety Report 25244480 (Version 1)
Quarter: 2025Q2

REPORT INFORMATION
  Report Type: Spontaneous
  Country: BE (occurrence: BE)
  Receive Date: 20250428
  Receipt Date: 20250428
  Transmission Date: 20250716
  Serious: No
  Sender: ALKEM
  Company Number: BE-ALKEM LABORATORIES LIMITED-BE-ALKEM-2024-11874

PATIENT
  Age: 16 Year
  Sex: Male

DRUGS (6)
  1. BEVACIZUMAB [Suspect]
     Active Substance: BEVACIZUMAB
     Indication: Pneumonia
     Route: 042
  2. SIROLIMUS [Suspect]
     Active Substance: SIROLIMUS
     Indication: Pneumonia
     Dosage: UNK, QD, (2-4 MILLIGRAM)
     Route: 065
  3. SIROLIMUS [Suspect]
     Active Substance: SIROLIMUS
     Dosage: 1 MILLIGRAM, QD,
     Route: 065
  4. TRAMETINIB [Suspect]
     Active Substance: TRAMETINIB
     Indication: Pneumonia
     Dosage: 1 TO 1.5 MILLIGRAM, QD
     Route: 065
  5. TRAMETINIB [Suspect]
     Active Substance: TRAMETINIB
     Dosage: 0.5 MILLIGRAM, QD
     Route: 065
  6. TRAMETINIB [Suspect]
     Active Substance: TRAMETINIB
     Dosage: 1 MILLIGRAM, QD
     Route: 065

REACTIONS (4)
  - Asthenia [Unknown]
  - Diarrhoea [Unknown]
  - Mucosal inflammation [Recovering/Resolving]
  - Drug ineffective [Unknown]
